FAERS Safety Report 15629625 (Version 1)
Quarter: 2018Q4

REPORT INFORMATION
  Report Type: Spontaneous
  Country: GB (occurrence: GB)
  Receive Date: 20181117
  Receipt Date: 20181117
  Transmission Date: 20190205
  Serious: Yes (Hospitalization, Other)
  Sender: FDA-Public Use
  Company Number: GB-AUROBINDO-AUR-APL-2018-055541

PATIENT
  Sex: Male

DRUGS (6)
  1. HALOPERIDOL. [Suspect]
     Active Substance: HALOPERIDOL
     Dosage: 20 MILLIGRAM, DAILY,DOSAGE FORM: UNSPECIFIED
     Route: 065
     Dates: start: 2018
  2. OLANZAPINE. [Suspect]
     Active Substance: OLANZAPINE
     Indication: BIPOLAR DISORDER
     Dosage: 30 MILLIGRAM, DAILY,DOSAGE FORM: UNSPECIFIED
     Route: 065
     Dates: start: 2012
  3. LITHIUM. [Suspect]
     Active Substance: LITHIUM
     Dosage: 400 MILLIGRAM, DAILY,DOSAGE FORM: UNSPECIFIED
     Route: 065
  4. HALOPERIDOL. [Suspect]
     Active Substance: HALOPERIDOL
     Indication: BIPOLAR DISORDER
     Dosage: UNK.DOSAGE FORM: UNSPECIFIED, 5 MG MAX UP TO 20 MG PER DAY ; AS NECESSARY
     Route: 065
  5. LITHIUM. [Suspect]
     Active Substance: LITHIUM
     Indication: BIPOLAR DISORDER
     Dosage: 600 MILLIGRAM, DAILY,DOSAGE FORM: UNSPECIFIED
     Route: 065
     Dates: start: 2012
  6. SODIUM VALPROATE [Suspect]
     Active Substance: VALPROATE SODIUM
     Indication: BIPOLAR DISORDER
     Dosage: 3 GRAM, DAILY,DOSAGE FORM: UNSPECIFIED
     Route: 065
     Dates: start: 2012

REACTIONS (3)
  - Mental impairment [Unknown]
  - Drug ineffective [Unknown]
  - Bipolar disorder [Unknown]

NARRATIVE: CASE EVENT DATE: 2013
